FAERS Safety Report 15570890 (Version 1)
Quarter: 2018Q4

REPORT INFORMATION
  Report Type: Spontaneous
  Country: FR (occurrence: FR)
  Receive Date: 20181031
  Receipt Date: 20181031
  Transmission Date: 20190205
  Serious: Yes (Hospitalization, Other)
  Sender: FDA-Public Use
  Company Number: FR-PFIZER INC-2018439110

PATIENT
  Age: 24 Year
  Sex: Female
  Weight: 113 kg

DRUGS (7)
  1. GUTRON [Suspect]
     Active Substance: MIDODRINE
     Indication: SUICIDE ATTEMPT
     Dosage: 150 MG, UNK
     Route: 048
     Dates: start: 20180721, end: 20180721
  2. ABILIFY [Suspect]
     Active Substance: ARIPIPRAZOLE
     Indication: SUICIDE ATTEMPT
     Dosage: 420 MG, UNK
     Route: 048
     Dates: start: 20180721, end: 20180721
  3. MIANSERINE [MIANSERIN HYDROCHLORIDE] [Concomitant]
     Dosage: UNK
  4. FOLINIC ACID [Concomitant]
     Active Substance: LEUCOVORIN
     Dosage: UNK
  5. DOLIPRANE [Suspect]
     Active Substance: ACETAMINOPHEN
     Indication: SUICIDE ATTEMPT
     Dosage: 5 G, UNK
     Route: 048
     Dates: start: 20180721, end: 20180721
  6. TEGRETOL [Suspect]
     Active Substance: CARBAMAZEPINE
     Indication: SUICIDE ATTEMPT
     Dosage: 12 G, UNK
     Route: 048
     Dates: start: 20180721, end: 20180721
  7. IBUPROFEN. [Suspect]
     Active Substance: IBUPROFEN
     Indication: SUICIDE ATTEMPT
     Dosage: 6 G, UNK
     Route: 048
     Dates: start: 20180721, end: 20180721

REACTIONS (3)
  - Suicide attempt [Unknown]
  - Vomiting [Recovered/Resolved]
  - Intentional overdose [Unknown]

NARRATIVE: CASE EVENT DATE: 20180721
